FAERS Safety Report 6493372-8 (Version None)
Quarter: 2009Q4

REPORT INFORMATION
  Report Type: 
  Country: None (occurrence: None)
  Receive Date: 20091214
  Receipt Date: 20091203
  Transmission Date: 20100525
  Serious: Yes (Other)
  Sender: FDA-Public Use
  Company Number: JP-BRISTOL-MYERS SQUIBB COMPANY-14870240

PATIENT
  Age: 65 Year
  Sex: Female

DRUGS (3)
  1. ABILIFY [Suspect]
     Indication: SCHIZOPHRENIA
     Route: 048
  2. LITHIUM CARBONATE [Concomitant]
     Dosage: TABS
  3. CLONAZEPAM [Concomitant]

REACTIONS (4)
  - DELUSION [None]
  - HALLUCINATION [None]
  - HALLUCINATION, OLFACTORY [None]
  - RESTLESSNESS [None]
